FAERS Safety Report 8964558 (Version 1)
Quarter: 2012Q4

REPORT INFORMATION
  Report Type: 
  Country: US (occurrence: US)
  Receive Date: 20121214
  Receipt Date: 20121214
  Transmission Date: 20130627
  Serious: No
  Sender: FDA-Public Use
  Company Number: US-BAYER-2012-123504

PATIENT
  Age: 45 Year
  Sex: Female

DRUGS (17)
  1. ALEVE CAPLET/TABLET,MIDOL EXTENDED RELIEF CAPLET [Suspect]
  2. GABAPENTIN [Concomitant]
     Dosage: 1 DF, UNK
     Route: 048
  3. OMEGA 3 [Concomitant]
     Dosage: 1 DF, QD
     Route: 048
  4. IBUPROFEN [Concomitant]
     Dosage: 3 DF, BID with food
     Route: 048
  5. ACETAMINOPHEN W/HYDROCODONE [Concomitant]
     Indication: PAIN
     Dosage: 1 DF, PRN every 8 hours
     Route: 048
  6. FLEXERIL [Concomitant]
     Indication: MUSCLE SPASM
     Dosage: 1 DF, PRN three times a day
  7. RANITIDINE [Concomitant]
     Dosage: 1 DF, Once a day PRN
     Route: 048
  8. PRAVASTATIN SODIUM [Concomitant]
     Dosage: 1 DF, every evening
  9. MIRALAX [Concomitant]
     Dosage: UNK, AS DIRECTED
     Route: 048
  10. GENISTEIN [Concomitant]
     Dosage: 1 DF, QD
     Route: 048
  11. VITAMIN D [Concomitant]
     Dosage: 1 DF, QD
  12. CALCIUM D [Concomitant]
     Dosage: 1 DF, UNK
     Route: 048
  13. VENTOLIN HFA [Concomitant]
     Indication: COUGH
     Dosage: 1 puff(s), EVERY 4 HOURS AS NEEDED
  14. VENTOLIN HFA [Concomitant]
     Indication: WHEEZING
  15. VENTOLIN HFA [Concomitant]
     Indication: SHORTNESS OF BREATH
  16. LORATADIN [Concomitant]
     Dosage: 1 DF, QD
     Route: 048
  17. NEURONTIN [Concomitant]
     Dosage: 1 DF, BID

REACTIONS (1)
  - Hypersensitivity [None]
